FAERS Safety Report 7706141-5 (Version None)
Quarter: 2011Q3

REPORT INFORMATION
  Report Type: 
  Country: None (occurrence: None)
  Receive Date: 20110824
  Receipt Date: 20110721
  Transmission Date: 20111222
  Serious: No
  Sender: FDA-Public Use
  Company Number: US-BAYER-2011-064330

PATIENT

DRUGS (3)
  1. ALEVE (CAPLET) [Suspect]
     Route: 048
  2. INSULIN [Concomitant]
  3. CLARITIN [Concomitant]

REACTIONS (3)
  - FEELING ABNORMAL [None]
  - EYE SWELLING [None]
  - HEADACHE [None]
